FAERS Safety Report 5194536-6 (Version None)
Quarter: 2006Q4

REPORT INFORMATION
  Report Type: 
  Country: None (occurrence: None)
  Receive Date: 20061221
  Receipt Date: 20061218
  Transmission Date: 20070319
  Serious: Yes (Hospitalization)
  Sender: FDA-Public Use
  Company Number: HQWYE668120DEC06

PATIENT
  Age: 42 Year
  Sex: Female

DRUGS (1)
  1. PREMARIN [Suspect]
     Indication: MENOPAUSE
     Dosage: 0.625MG DAILY, 21/28 DAY TREATMENT
     Route: 048

REACTIONS (3)
  - AMENORRHOEA [None]
  - HAEMANGIOMA OF LIVER [None]
  - MENSTRUATION IRREGULAR [None]
